FAERS Safety Report 8073039-5 (Version None)
Quarter: 2012Q1

REPORT INFORMATION
  Report Type: 
  Country: None (occurrence: None)
  Receive Date: 20120126
  Receipt Date: 20120118
  Transmission Date: 20120608
  Serious: Yes (Hospitalization, Other)
  Sender: FDA-Public Use
  Company Number: AR-BRISTOL-MYERS SQUIBB COMPANY-15759731

PATIENT
  Age: 44 Year
  Sex: Female

DRUGS (4)
  1. METHOTREXATE [Suspect]
     Indication: RHEUMATOID ARTHRITIS
     Dates: start: 20090101, end: 20110314
  2. ABATACEPT [Suspect]
     Indication: RHEUMATOID ARTHRITIS
     Route: 058
     Dates: start: 20100830, end: 20110509
  3. MELOXICAM [Concomitant]
     Dosage: ALSO 15MG
     Route: 048
     Dates: start: 20100415, end: 20110509
  4. PREDNISOLONE [Concomitant]
     Route: 048
     Dates: start: 20090101, end: 20110509

REACTIONS (3)
  - DIABETES MELLITUS [None]
  - PULMONARY EMBOLISM [None]
  - ORGANISING PNEUMONIA [None]
